FAERS Safety Report 5399993-8 (Version None)
Quarter: 2007Q3

REPORT INFORMATION
  Report Type: 
  Country: None (occurrence: None)
  Receive Date: 20070726
  Receipt Date: 20070726
  Transmission Date: 20080115
  Serious: Yes (Other)
  Sender: FDA-Public Use
  Company Number: None

PATIENT
  Age: 34 Year
  Sex: Female
  Weight: 72.5755 kg

DRUGS (2)
  1. LEVAQUIN [Suspect]
     Indication: SINUSITIS
     Dosage: 500MG ONCE PO
     Route: 048
     Dates: start: 20050901, end: 20050910
  2. SEROQUEL [Suspect]
     Indication: ANXIETY
     Dosage: 25MG ONCE PO
     Route: 048
     Dates: start: 20050501, end: 20060301

REACTIONS (4)
  - DIZZINESS [None]
  - HYPERHIDROSIS [None]
  - MIDDLE INSOMNIA [None]
  - PALPITATIONS [None]
